FAERS Safety Report 6569430-6 (Version None)
Quarter: 2010Q1

REPORT INFORMATION
  Report Type: 
  Country: None (occurrence: None)
  Receive Date: 20100202
  Receipt Date: 20100202
  Transmission Date: 20100710
  Serious: Yes (Other)
  Sender: FDA-Public Use
  Company Number: None

PATIENT
  Sex: Female
  Weight: 102.0593 kg

DRUGS (2)
  1. PEGYSYS [Suspect]
     Indication: HEPATITIS C
     Dosage: FULL STRENGTH
     Dates: start: 20071201, end: 20080101
  2. INTERFERON [Suspect]
     Dosage: FULL STRENGTH

REACTIONS (3)
  - DYSPNOEA [None]
  - SCAB [None]
  - SKIN DISCOLOURATION [None]
